FAERS Safety Report 11827170 (Version 2)
Quarter: 2015Q4

REPORT INFORMATION
  Report Type: Spontaneous
  Country: JP (occurrence: JP)
  Receive Date: 20151211
  Receipt Date: 20151223
  Transmission Date: 20160305
  Serious: Yes (Hospitalization, Other)
  Sender: FDA-Public Use
  Company Number: PHJP2015JP022068

PATIENT
  Age: 79 Year
  Sex: Male
  Weight: 47 kg

DRUGS (4)
  1. NEUPRO [Concomitant]
     Active Substance: ROTIGOTINE
     Indication: PARKINSON^S DISEASE
     Dosage: 9 MG, QD
     Route: 062
     Dates: start: 20151127, end: 20151203
  2. EXELON PATCH [Suspect]
     Active Substance: RIVASTIGMINE
     Dosage: 1.9 MG, QD (BASE 4.5 MG, PACT 2.5 CM)
     Route: 062
     Dates: start: 20151205
  3. EXELON PATCH [Suspect]
     Active Substance: RIVASTIGMINE
     Indication: DEMENTIA ALZHEIMER^S TYPE
     Dosage: 4.6 MG, QD BASE 9 MG ,PATCH 5
     Route: 062
     Dates: start: 20151112, end: 20151203
  4. NEUPRO [Concomitant]
     Active Substance: ROTIGOTINE
     Dosage: 4.5 MG, QD
     Route: 062
     Dates: start: 20151204, end: 20151205

REACTIONS (2)
  - Pyrexia [Recovered/Resolved]
  - Staphylococcal infection [Recovering/Resolving]

NARRATIVE: CASE EVENT DATE: 20151201
